FAERS Safety Report 7643776-2 (Version None)
Quarter: 2011Q3

REPORT INFORMATION
  Report Type: 
  Country: None (occurrence: None)
  Receive Date: 20110722
  Receipt Date: 20110706
  Transmission Date: 20111222
  Serious: Yes (Death, Hospitalization)
  Sender: FDA-Public Use
  Company Number: 2011MA008428

PATIENT
  Age: 80 Year
  Sex: Female

DRUGS (8)
  1. FUROSEMIDE [Concomitant]
  2. DIGOXIN [Concomitant]
  3. NAPROXEN [Suspect]
     Indication: RHEUMATOID ARTHRITIS
     Dosage: 550 MG;BID
  4. METOPROLOL TARTRATE [Concomitant]
  5. LISINOPRIL [Concomitant]
  6. METHOTREXATE [Concomitant]
  7. ACETAMINOPHEN [Concomitant]
  8. CELECOXIB [Concomitant]

REACTIONS (4)
  - RENAL IMPAIRMENT [None]
  - HAEMORRHAGE [None]
  - WEIGHT INCREASED [None]
  - OEDEMA [None]
